FAERS Safety Report 8360747-1 (Version None)
Quarter: 2012Q2

REPORT INFORMATION
  Report Type: 
  Country: None (occurrence: None)
  Receive Date: 20120515
  Receipt Date: 20120511
  Transmission Date: 20120825
  Serious: Yes (Life-Threatening, Hospitalization, Other)
  Sender: FDA-Public Use
  Company Number: US-ABBOTT-12P-163-0934631-00

PATIENT
  Sex: Female
  Weight: 51.756 kg

DRUGS (6)
  1. HUMIRA [Suspect]
     Indication: CROHN'S DISEASE
     Dates: start: 20060101, end: 20070101
  2. HUMIRA [Suspect]
     Indication: CROHN'S DISEASE
     Dates: end: 20120401
  3. ASACHOL [Concomitant]
     Indication: PRODUCT USED FOR UNKNOWN INDICATION
  4. CO Q-10 [Concomitant]
     Indication: PRODUCT USED FOR UNKNOWN INDICATION
  5. HUMIRA [Suspect]
     Dates: start: 20080101
  6. ASPIRIN [Concomitant]
     Indication: CARDIAC DISORDER

REACTIONS (16)
  - ANORECTAL CELLULITIS [None]
  - HYPOTENSION [None]
  - HYPOXIA [None]
  - INFECTION [None]
  - PERIANAL ERYTHEMA [None]
  - FISTULA [None]
  - CONVULSION [None]
  - COMA [None]
  - CROHN'S DISEASE [None]
  - FATIGUE [None]
  - CARDIAC ARREST [None]
  - RESPIRATORY DISTRESS [None]
  - UNEVALUABLE EVENT [None]
  - CELLULITIS [None]
  - SEPSIS [None]
  - DIARRHOEA [None]
